FAERS Safety Report 12730147 (Version 3)
Quarter: 2017Q4

REPORT INFORMATION
  Report Type: Spontaneous
  Country: US (occurrence: US)
  Receive Date: 20160909
  Receipt Date: 20171005
  Transmission Date: 20180320
  Serious: Yes (Death, Life-Threatening, Other)
  Sender: FDA-Public Use
  Company Number: US-ACTELION-A-US2016-141885

PATIENT
  Age: 6 Year
  Sex: Male

DRUGS (26)
  1. VIMPAT [Concomitant]
     Active Substance: LACOSAMIDE
     Dosage: 1 T, UNK
     Dates: start: 20170713
  2. SODIUM FLUORIDE. [Concomitant]
     Active Substance: SODIUM FLUORIDE
     Dosage: 2 GTT, UNK
     Dates: start: 20160728
  3. VITAMIN D3 [Concomitant]
     Active Substance: CHOLECALCIFEROL
     Dosage: 400 U, UNK
  4. SENOKOT [Concomitant]
     Active Substance: SENNOSIDES
     Dosage: 3.6 MG, UNK
  5. MULTIVITAMINS W/MINERALS [Concomitant]
     Active Substance: MINERALS\VITAMINS
     Dosage: UNK
     Dates: start: 20140319
  6. TRACLEER [Suspect]
     Active Substance: BOSENTAN
     Dosage: 62.5 MG, BID
     Route: 048
     Dates: start: 20160715
  7. SILDENAFIL. [Concomitant]
     Active Substance: SILDENAFIL
     Dosage: 0.5 T, UNK
     Dates: start: 20161212
  8. ROWASA [Concomitant]
     Active Substance: MESALAMINE
     Dosage: 30 ML, UNK
     Dates: start: 20170519
  9. DIASTAT [Concomitant]
     Active Substance: DIAZEPAM
     Dosage: 7.5 MG, UNK
     Dates: start: 20160106
  10. TYLENOL [Concomitant]
     Active Substance: ACETAMINOPHEN
     Dosage: 0.5 T, UNK
     Dates: start: 20161228
  11. POLYVINYL ALCOHOL [Concomitant]
     Active Substance: POLYVINYL ALCOHOL
     Dosage: 2 GTT, UNK
     Dates: start: 20160729
  12. MIRALAX [Concomitant]
     Active Substance: POLYETHYLENE GLYCOL 3350
     Dosage: UNK, QD
     Dates: start: 20170713
  13. ALBUTEROL. [Concomitant]
     Active Substance: ALBUTEROL
     Dosage: 1 UNK, UNK
     Dates: start: 20170531
  14. BACLOFEN. [Concomitant]
     Active Substance: BACLOFEN
     Dosage: 1.5 T, UNK
     Dates: start: 20170105
  15. TRACLEER [Suspect]
     Active Substance: BOSENTAN
     Dosage: 17.8 MG, BID
     Route: 048
     Dates: start: 20160715
  16. CREON [Concomitant]
     Active Substance: PANCRELIPASE AMYLASE\PANCRELIPASE LIPASE\PANCRELIPASE PROTEASE
     Dosage: 1 UNK, UNK
     Dates: start: 20170713
  17. PRILOSEC [Concomitant]
     Active Substance: OMEPRAZOLE MAGNESIUM
     Dosage: 13 ML, UNK
     Dates: start: 20170313
  18. KEPPRA [Concomitant]
     Active Substance: LEVETIRACETAM
     Dosage: 500 MG, UNK
     Dates: start: 20161103
  19. TRACLEER [Suspect]
     Active Substance: BOSENTAN
     Indication: PULMONARY ARTERIAL HYPERTENSION
     Dosage: 8.9 MG, BID
     Route: 048
     Dates: start: 20160701, end: 20170821
  20. ONFI [Concomitant]
     Active Substance: CLOBAZAM
     Dosage: 1 UNK, UNK
     Dates: start: 20170705
  21. TRACLEER [Suspect]
     Active Substance: BOSENTAN
     Dosage: 1.4 ML BID (6.25 MG/ML)
     Route: 048
  22. HIZENTRA [Concomitant]
     Active Substance: HUMAN IMMUNOGLOBULIN G
     Dosage: 15 ML, UNK
     Dates: start: 20170620
  23. NORMODYNE [Concomitant]
     Active Substance: LABETALOL HYDROCHLORIDE
     Dosage: 1 ML, UNK
     Dates: start: 20161201
  24. SODIUM BICARB.PED [Concomitant]
     Dosage: 650 MG, UNK
     Dates: start: 20161017
  25. BENADRYL [Concomitant]
     Active Substance: DIPHENHYDRAMINE HYDROCHLORIDE
     Dosage: 0.5 T, UNK
     Route: 048
     Dates: start: 20170128
  26. TRIAMCINOLONE [Concomitant]
     Active Substance: TRIAMCINOLONE
     Dosage: UNK
     Dates: start: 20140214

REACTIONS (6)
  - Condition aggravated [Not Recovered/Not Resolved]
  - Chronic gastrointestinal bleeding [Fatal]
  - Cardiopulmonary failure [Fatal]
  - Anaemia [Fatal]
  - Transfusion reaction [Unknown]
  - Packed red blood cell transfusion [Unknown]

NARRATIVE: CASE EVENT DATE: 20170720
